FAERS Safety Report 13706341 (Version 1)
Quarter: 2017Q2

REPORT INFORMATION
  Report Type: Spontaneous
  Country: US (occurrence: US)
  Receive Date: 20170630
  Receipt Date: 20170630
  Transmission Date: 20170830
  Serious: No
  Sender: FDA-Public Use
  Company Number: GXBR2017US001796

PATIENT
  Sex: Female
  Weight: 68.27 kg

DRUGS (1)
  1. BIMATOPROST. [Suspect]
     Active Substance: BIMATOPROST
     Indication: GROWTH OF EYELASHES
     Dosage: UNK DF, UNK
     Route: 065
     Dates: start: 201703, end: 20170515

REACTIONS (1)
  - Drug ineffective [Not Recovered/Not Resolved]
